FAERS Safety Report 5696780-8 (Version None)
Quarter: 2008Q2

REPORT INFORMATION
  Report Type: 
  Country: None (occurrence: None)
  Receive Date: 20080404
  Receipt Date: 20080401
  Transmission Date: 20081010
  Serious: No
  Sender: FDA-Public Use
  Company Number: APP200800243

PATIENT
  Age: 86 Year
  Sex: Female
  Weight: 55.3 kg

DRUGS (13)
  1. HEPARIN SODIUM INJECTION [Suspect]
     Indication: ANTICOAGULANT THERAPY
     Dosage: 5000 USP UNITS, ONCE, INTRAVENOUS BOLUS
     Route: 040
     Dates: start: 20080330, end: 20080330
  2. HEPARIN [Suspect]
     Indication: ANTICOAGULANT THERAPY
     Dosage: 660 USP UNITS, BAXTER PREMIX BAG, INTRAVENOUS DRIP
     Route: 041
     Dates: start: 20080330, end: 20080330
  3. FUROSEMIDE [Concomitant]
  4. TAMBOCOR (FLECANIDE ACETATE) [Concomitant]
  5. SYNTHROID [Concomitant]
  6. ATIVAN [Concomitant]
  7. FOSAMAX [Concomitant]
  8. DARVOCENT (APOREX) [Concomitant]
  9. ALPHAGAN (BRIMONIDINE) [Concomitant]
  10. CALTRATE (CALCIUM CARBONATE) [Concomitant]
  11. NITROGLYCERIN [Concomitant]
  12. ATENOLOL [Concomitant]
  13. CRESTOR [Concomitant]

REACTIONS (4)
  - HYPERSENSITIVITY [None]
  - HYPOTENSION [None]
  - INFUSION RELATED REACTION [None]
  - PETECHIAE [None]
